FAERS Safety Report 7056131-3 (Version None)
Quarter: 2010Q4

REPORT INFORMATION
  Report Type: 
  Country: None (occurrence: None)
  Receive Date: 20101021
  Receipt Date: 20101020
  Transmission Date: 20110411
  Serious: Yes (Death)
  Sender: FDA-Public Use
  Company Number: US-JNJFOC-20080102167

PATIENT
  Age: 50 Year
  Sex: Female

DRUGS (4)
  1. IBUPROFEN [Suspect]
     Indication: SUICIDE ATTEMPT
     Route: 048
  2. FUROSEMIDE [Suspect]
     Indication: SUICIDE ATTEMPT
     Route: 048
  3. UNSPECIFIED MEDICATION [Suspect]
     Indication: SUICIDE ATTEMPT
     Route: 048
  4. DIGOXIN [Suspect]
     Indication: SUICIDE ATTEMPT
     Route: 048

REACTIONS (1)
  - DRUG TOXICITY [None]
